FAERS Safety Report 25726749 (Version 1)
Quarter: 2025Q3

REPORT INFORMATION
  Report Type: Spontaneous
  Country: US (occurrence: None)
  Receive Date: 20250825
  Receipt Date: 20250825
  Transmission Date: 20251020
  Serious: Yes (Hospitalization)
  Sender: FDA-CTU
  Company Number: None

PATIENT

DRUGS (1)
  1. ACETAMINOPHEN [Suspect]
     Active Substance: ACETAMINOPHEN

REACTIONS (7)
  - Vomiting [None]
  - Pyrexia [None]
  - Toxicity to various agents [None]
  - Hepatotoxicity [None]
  - Renal impairment [None]
  - Overdose [None]
  - Analgesic drug level increased [None]

NARRATIVE: CASE EVENT DATE: 20220214
